FAERS Safety Report 12647601 (Version 1)
Quarter: 2016Q3

REPORT INFORMATION
  Report Type: Spontaneous
  Country: DE (occurrence: DE)
  Receive Date: 20160812
  Receipt Date: 20160812
  Transmission Date: 20161109
  Serious: Yes (Life-Threatening, Hospitalization, Other)
  Sender: FDA-Public Use
  Company Number: DE-B.I. PHARMACEUTICALS,INC./RIDGEFIELD-2016-BI-52021BI

PATIENT
  Age: 65 Year
  Sex: Male

DRUGS (2)
  1. PRAXBIND [Suspect]
     Active Substance: IDARUCIZUMAB
     Indication: PRODUCT USED FOR UNKNOWN INDICATION
     Route: 065
  2. PRADAXA [Suspect]
     Active Substance: DABIGATRAN ETEXILATE MESYLATE
     Indication: ATRIAL FIBRILLATION
     Route: 048

REACTIONS (11)
  - Tachycardia [Unknown]
  - Melaena [Unknown]
  - Gastrointestinal haemorrhage [Unknown]
  - Haemorrhage [Unknown]
  - Dyspnoea [Unknown]
  - Hypotension [Unknown]
  - Asthenia [Unknown]
  - Apparent death [Unknown]
  - Faeces discoloured [Unknown]
  - Pallor [Unknown]
  - Therapeutic embolisation [Unknown]
